FAERS Safety Report 6781182-3 (Version None)
Quarter: 2010Q2

REPORT INFORMATION
  Report Type: 
  Country: None (occurrence: None)
  Receive Date: 20100621
  Receipt Date: 20100611
  Transmission Date: 20101027
  Serious: Yes (Other)
  Sender: FDA-Public Use
  Company Number: US-PFIZER INC-2010074393

PATIENT
  Sex: Female

DRUGS (3)
  1. XANAX [Suspect]
     Indication: DEPRESSION
     Dosage: 8 MG, UNK
  2. XANAX [Suspect]
     Indication: PANIC ATTACK
  3. XANAX [Suspect]
     Indication: ANXIETY

REACTIONS (9)
  - AMNESIA [None]
  - DRUG DEPENDENCE [None]
  - HALLUCINATION [None]
  - INSOMNIA [None]
  - MALAISE [None]
  - NIGHTMARE [None]
  - SEROTONIN SYNDROME [None]
  - TARDIVE DYSKINESIA [None]
  - VOMITING [None]
